FAERS Safety Report 26187835 (Version 1)
Quarter: 2025Q4

REPORT INFORMATION
  Report Type: Spontaneous
  Country: US (occurrence: US)
  Receive Date: 20251222
  Receipt Date: 20251222
  Transmission Date: 20260118
  Serious: No
  Sender: ABBVIE
  Company Number: US-ABBVIE-6600420

PATIENT

DRUGS (1)
  1. UPADACITINIB [Suspect]
     Active Substance: UPADACITINIB
     Indication: Vasculitis
     Route: 048

REACTIONS (3)
  - Paraesthesia [Unknown]
  - Off label use [Unknown]
  - Psoriasis [Unknown]
